FAERS Safety Report 5108686-3 (Version None)
Quarter: 2006Q3

REPORT INFORMATION
  Report Type: 
  Country: None (occurrence: None)
  Receive Date: 20060915
  Receipt Date: 20060904
  Transmission Date: 20061208
  Serious: Yes (Hospitalization)
  Sender: FDA-Public Use
  Company Number: 2006108048

PATIENT
  Age: 76 Year
  Sex: Female

DRUGS (9)
  1. LYRICA [Suspect]
     Indication: NEURALGIA
     Dates: start: 20060804
  2. CORDARONE [Suspect]
     Indication: DRUG USE FOR UNKNOWN INDICATION
  3. AMARYL [Concomitant]
  4. ACARBOSE [Concomitant]
  5. PRITOR (TELMISARTAN) [Concomitant]
  6. AMITRIPTYLINE HCL [Concomitant]
  7. CLONAZEPAM [Concomitant]
  8. FRACTAL (FLURVASTATIN) [Concomitant]
  9. ASPIRIN [Concomitant]

REACTIONS (4)
  - BLOOD PRESSURE DECREASED [None]
  - BRADYCARDIA [None]
  - DEVICE INEFFECTIVE [None]
  - SHOCK [None]
